FAERS Safety Report 9109055 (Version 1)
Quarter: 2013Q1

REPORT INFORMATION
  Report Type: Spontaneous
  Country: US (occurrence: US)
  Receive Date: 20130222
  Receipt Date: 20130222
  Transmission Date: 20140127
  Serious: Yes (Death, Other)
  Sender: FDA-Public Use
  Company Number: US-BAYER-2013-020958

PATIENT
  Age: 63 Year
  Sex: Male
  Weight: 81.63 kg

DRUGS (2)
  1. VANQUISH [Suspect]
     Indication: ANALGESIC THERAPY
     Dosage: 2 DF, PRN
     Route: 048
  2. DRUG USED IN DIABETES [Concomitant]

REACTIONS (2)
  - Hepatic cancer [Fatal]
  - Diabetes mellitus [None]
